FAERS Safety Report 6535517-7 (Version None)
Quarter: 2010Q1

REPORT INFORMATION
  Report Type: 
  Country: None (occurrence: None)
  Receive Date: 20100111
  Receipt Date: 20100111
  Transmission Date: 20100710
  Serious: Yes (Other)
  Sender: FDA-Public Use
  Company Number: None

PATIENT

DRUGS (3)
  1. SOTOLOL HCL 120MG MYLAN [Suspect]
     Indication: ARRHYTHMIA
     Dosage: 120MG BID PO
     Route: 048
     Dates: start: 20091214
  2. SOTOLOL HCL 120MG MYLAN [Suspect]
     Indication: ARRHYTHMIA
     Dosage: 120MG BID PO
     Route: 048
     Dates: start: 20091215
  3. SOTOLOL HCL 120MG MYLAN [Suspect]
     Indication: ARRHYTHMIA
     Dosage: 120MG BID PO
     Route: 048
     Dates: start: 20091223

REACTIONS (4)
  - HEART RATE INCREASED [None]
  - HYPERHIDROSIS [None]
  - INSOMNIA [None]
  - PRODUCT SUBSTITUTION ISSUE [None]
